FAERS Safety Report 5949183-2 (Version None)
Quarter: 2008Q4

REPORT INFORMATION
  Report Type: 
  Country: None (occurrence: None)
  Receive Date: 20081111
  Receipt Date: 20081030
  Transmission Date: 20090506
  Serious: Yes (Hospitalization)
  Sender: FDA-Public Use
  Company Number: JP-ABBOTT-08P-087-0486556-00

PATIENT
  Age: 75 Year
  Sex: Male

DRUGS (4)
  1. LEUPROLIDE ACETATE [Suspect]
     Indication: PROSTATE CANCER STAGE II
     Route: 058
     Dates: start: 20070921, end: 20080314
  2. LEUPROLIDE ACETATE [Suspect]
     Route: 058
     Dates: start: 20070704
  3. BICALUTAMIDE [Concomitant]
     Indication: PROSTATE CANCER STAGE II
     Route: 048
  4. NAFTOPIDIL [Concomitant]
     Indication: BENIGN PROSTATIC HYPERPLASIA
     Route: 048
     Dates: end: 20071108

REACTIONS (3)
  - BENIGN PROSTATIC HYPERPLASIA [None]
  - HEPATIC NEOPLASM MALIGNANT RECURRENT [None]
  - INSOMNIA [None]
